FAERS Safety Report 15491613 (Version 1)
Quarter: 2018Q4

REPORT INFORMATION
  Report Type: Spontaneous
  Country: US (occurrence: US)
  Receive Date: 20181012
  Receipt Date: 20181012
  Transmission Date: 20190205
  Serious: No
  Sender: FDA-Public Use
  Company Number: US-BRISTOL-MYERS SQUIBB COMPANY-BMS-2018-094843

PATIENT
  Sex: Female
  Weight: 59.87 kg

DRUGS (2)
  1. ORENCIA [Suspect]
     Active Substance: ABATACEPT
     Indication: OSTEOPOROSIS
     Dosage: 750 MG, Q2WK
     Route: 042
     Dates: start: 201502
  2. ORENCIA [Suspect]
     Active Substance: ABATACEPT
     Indication: POLYARTHRITIS
     Dosage: 750 MG, Q4WK
     Route: 042

REACTIONS (3)
  - Drug ineffective [Unknown]
  - Pain [Unknown]
  - Product use in unapproved indication [Unknown]
